FAERS Safety Report 4584095-0 (Version None)
Quarter: 2005Q1

REPORT INFORMATION
  Report Type: 
  Country: None (occurrence: None)
  Receive Date: 20050125
  Receipt Date: 20041202
  Transmission Date: 20050727
  Serious: No
  Sender: FDA-Public Use
  Company Number: USA041182785

PATIENT
  Age: 63 Year
  Sex: Female
  Weight: 55 kg

DRUGS (4)
  1. FORTEO [Suspect]
     Indication: OSTEOPOROSIS
     Dosage: 20 UG/1 DAY
     Dates: start: 20041028
  2. RALOXIFENE HCL [Suspect]
     Dosage: 60 MG/1 DAY
     Dates: start: 19960101, end: 20040901
  3. IMITREX [Concomitant]
  4. PREDNISONE [Concomitant]

REACTIONS (15)
  - BODY HEIGHT DECREASED [None]
  - BONE DENSITY DECREASED [None]
  - BRONCHITIS [None]
  - COUGH [None]
  - FATIGUE [None]
  - FEELING ABNORMAL [None]
  - INJECTION SITE ERYTHEMA [None]
  - MIGRAINE [None]
  - MUSCLE SPASMS [None]
  - NASOPHARYNGITIS [None]
  - NAUSEA [None]
  - OEDEMA PERIPHERAL [None]
  - ORAL DISCOMFORT [None]
  - PALPITATIONS [None]
  - WEIGHT INCREASED [None]
